FAERS Safety Report 6308295-4 (Version None)
Quarter: 2009Q3

REPORT INFORMATION
  Report Type: 
  Country: None (occurrence: None)
  Receive Date: 20090813
  Receipt Date: 20090731
  Transmission Date: 20100115
  Serious: Yes (Death, Disabling, Other)
  Sender: FDA-Public Use
  Company Number: US-MERCK-0908USA00763

PATIENT
  Age: 74 Year
  Sex: Female

DRUGS (36)
  1. DECADRON [Suspect]
     Indication: MULTIPLE MYELOMA
     Route: 048
  2. THALOMID [Suspect]
     Indication: MULTIPLE MYELOMA
     Route: 048
     Dates: start: 20061201
  3. THALOMID [Suspect]
     Route: 048
     Dates: start: 20071201
  4. MELPHALAN [Concomitant]
     Route: 065
  5. PREDNISONE [Concomitant]
     Route: 048
  6. CALCIUM (UNSPECIFIED) [Concomitant]
     Route: 048
  7. ASPIRIN [Concomitant]
     Route: 048
  8. CELEBREX [Concomitant]
     Route: 048
  9. IBUPROFEN [Concomitant]
     Route: 048
  10. AMLODIPINE BESYLATE [Concomitant]
     Route: 048
  11. CYMBALTA [Concomitant]
     Route: 048
  12. SENOKOT [Concomitant]
     Route: 048
  13. MIRALAX [Concomitant]
     Route: 065
  14. NEUPOGEN [Concomitant]
     Route: 065
  15. SLOW MAG [Concomitant]
     Route: 065
  16. PEPCID [Concomitant]
     Route: 048
  17. DIOVAN [Concomitant]
     Route: 048
  18. LORTAB [Concomitant]
     Indication: PAIN
     Route: 048
  19. NAMENDA [Concomitant]
     Route: 048
     Dates: start: 20080606
  20. VITAMIN D (UNSPECIFIED) [Concomitant]
     Route: 048
  21. MIACALCIN [Concomitant]
     Route: 065
  22. NORVASC [Concomitant]
     Route: 048
  23. POTASSIUM CHLORIDE [Concomitant]
     Route: 065
  24. CIPRO [Concomitant]
     Route: 048
  25. PROCRIT [Concomitant]
     Route: 065
  26. LORAZEPAM [Concomitant]
     Route: 048
  27. SYNTHROID [Concomitant]
     Route: 065
  28. PENTANYL [Concomitant]
     Indication: PAIN MANAGEMENT
     Route: 065
  29. ZOMETA [Concomitant]
     Indication: PROPHYLAXIS
     Route: 065
  30. ZOMETA [Concomitant]
     Indication: BONE DISORDER
     Route: 065
  31. ATIVAN [Concomitant]
     Indication: ANXIETY
     Route: 065
  32. ATIVAN [Concomitant]
     Route: 065
  33. SENNA [Concomitant]
     Route: 048
  34. LYRICA [Concomitant]
     Route: 048
  35. MOTRIN [Concomitant]
     Indication: PAIN MANAGEMENT
     Route: 065
  36. REVLIMID [Suspect]
     Indication: MULTIPLE MYELOMA
     Route: 048
     Dates: start: 20080331, end: 20080616

REACTIONS (4)
  - DEATH [None]
  - DEMENTIA ALZHEIMER'S TYPE [None]
  - PANCYTOPENIA [None]
  - PARKINSON'S DISEASE [None]
